FAERS Safety Report 4467176-1 (Version None)
Quarter: 2004Q4

REPORT INFORMATION
  Report Type: 
  Country: None (occurrence: None)
  Receive Date: 20041006
  Receipt Date: 20041001
  Transmission Date: 20050328
  Serious: Yes (Life-Threatening, Disabling)
  Sender: FDA-Public Use
  Company Number: US-MERCK-0410USA00304

PATIENT
  Age: 76 Year
  Sex: Female

DRUGS (10)
  1. ZETIA [Suspect]
     Indication: BLOOD CHOLESTEROL INCREASED
     Route: 048
     Dates: start: 20040101, end: 20040101
  2. ZETIA [Suspect]
     Route: 048
     Dates: end: 20040101
  3. AMARYL [Concomitant]
     Route: 065
  4. GLUCOPHAGE [Concomitant]
     Route: 065
  5. DIOVAN [Concomitant]
     Route: 065
  6. VITAMINS (UNSPECIFIED) [Concomitant]
     Route: 065
  7. ELAVIL [Concomitant]
     Route: 065
  8. ASPIRIN [Concomitant]
     Route: 065
  9. CALCIUM (UNSPECIFIED) [Concomitant]
     Route: 065
  10. ZETIA [Suspect]
     Route: 048
     Dates: start: 20040101, end: 20040925

REACTIONS (4)
  - ARTHRALGIA [None]
  - CHEST PAIN [None]
  - DYSPNOEA [None]
  - MYALGIA [None]
